FAERS Safety Report 12609935 (Version 2)
Quarter: 2016Q4

REPORT INFORMATION
  Report Type: Spontaneous
  Country: FR (occurrence: FR)
  Receive Date: 20160801
  Receipt Date: 20161101
  Transmission Date: 20170207
  Serious: Yes (Hospitalization)
  Sender: FDA-Public Use
  Company Number: PHHY2016FR103020

PATIENT
  Age: 67 Year
  Sex: Female

DRUGS (2)
  1. AMOXICILLINE/ACIDE CLAVULANIQUE SANDOZ [Suspect]
     Active Substance: AMOXICILLIN\CLAVULANIC ACID
     Indication: POSTOPERATIVE WOUND INFECTION
     Dosage: 4 DF, QD
     Route: 048
     Dates: start: 20160216, end: 20160219
  2. CLINDAMYCIN. [Suspect]
     Active Substance: CLINDAMYCIN
     Indication: POSTOPERATIVE WOUND INFECTION
     Dosage: 1 DF, BID
     Route: 030
     Dates: start: 20160216, end: 20160218

REACTIONS (2)
  - Eosinophilia [Recovered/Resolved]
  - Acute generalised exanthematous pustulosis [Recovered/Resolved]

NARRATIVE: CASE EVENT DATE: 20160218
